FAERS Safety Report 10385878 (Version 5)
Quarter: 2015Q1

REPORT INFORMATION
  Report Type: Spontaneous
  Country: JP (occurrence: JP)
  Receive Date: 20140814
  Receipt Date: 20150219
  Transmission Date: 20150720
  Serious: Yes (Hospitalization)
  Sender: FDA-Public Use
  Company Number: JP-ASTRAZENECA-2014SE58439

PATIENT
  Age: 25567 Day
  Sex: Female
  Weight: 46 kg

DRUGS (9)
  1. SYMBICORT [Suspect]
     Active Substance: BUDESONIDE\FORMOTEROL FUMARATE DIHYDRATE
     Indication: ASTHMA
     Dosage: AS REQUIRED
     Route: 055
     Dates: start: 201407, end: 20140805
  2. VENETLIN [Suspect]
     Active Substance: ALBUTEROL SULFATE
     Indication: ASTHMA
     Route: 055
     Dates: start: 20140804, end: 20140805
  3. INTAL [Suspect]
     Active Substance: CROMOLYN SODIUM
     Indication: ASTHMA
     Route: 055
     Dates: start: 201408, end: 20140816
  4. SYMBICORT [Suspect]
     Active Substance: BUDESONIDE\FORMOTEROL FUMARATE DIHYDRATE
     Indication: ASTHMA
     Dosage: 2 INHALATION TWO TIMES A DAY
     Route: 055
     Dates: start: 201407, end: 20140805
  5. VENETLIN [Suspect]
     Active Substance: ALBUTEROL SULFATE
     Indication: ASTHMA
     Route: 055
     Dates: start: 201408, end: 20140816
  6. SYMBICORT [Suspect]
     Active Substance: BUDESONIDE\FORMOTEROL FUMARATE DIHYDRATE
     Indication: ASTHMA
     Dosage: 2 INHALATION TWO TIMES A DAY
     Route: 055
     Dates: start: 20140808, end: 20140811
  7. INTAL [Suspect]
     Active Substance: CROMOLYN SODIUM
     Indication: ASTHMA
     Route: 055
     Dates: start: 20140804, end: 20140805
  8. ONON [Concomitant]
     Active Substance: PRANLUKAST
     Dosage: DOSE UNKNOWN
     Route: 065
     Dates: start: 2004, end: 20140804
  9. SYMBICORT [Suspect]
     Active Substance: BUDESONIDE\FORMOTEROL FUMARATE DIHYDRATE
     Indication: ASTHMA
     Dosage: 4 INHALATION TWO TIMES A DAY
     Route: 055
     Dates: start: 20140812

REACTIONS (1)
  - Angle closure glaucoma [Recovering/Resolving]

NARRATIVE: CASE EVENT DATE: 20140805
